FAERS Safety Report 13162381 (Version 4)
Quarter: 2018Q1

REPORT INFORMATION
  Report Type: Spontaneous
  Country: US (occurrence: US)
  Receive Date: 20170130
  Receipt Date: 20180205
  Transmission Date: 20180508
  Serious: Yes (Other)
  Sender: FDA-Public Use
  Company Number: US-ROCHE-1884305

PATIENT
  Age: 65 Year
  Sex: Female

DRUGS (16)
  1. PEGASYS [Suspect]
     Active Substance: PEGINTERFERON ALFA-2A
     Dosage: UNKNOWN
     Route: 048
  2. INTERFERON ALFA-2A [Suspect]
     Active Substance: INTERFERON ALFA-2A
     Route: 065
     Dates: start: 2002
  3. INTERFERON ALFA-2A [Suspect]
     Active Substance: INTERFERON ALFA-2A
     Route: 065
     Dates: start: 2000
  4. RIBAVIRIN. [Suspect]
     Active Substance: RIBAVIRIN
     Dosage: PEGASYS-RBV FOR UNKNOWN INDICATIONS
     Route: 065
     Dates: start: 2003
  5. RIBAVIRIN. [Suspect]
     Active Substance: RIBAVIRIN
     Route: 048
     Dates: end: 2002
  6. RIBAVIRIN. [Suspect]
     Active Substance: RIBAVIRIN
     Indication: HEPATITIS C
     Route: 048
     Dates: start: 1999, end: 1999
  7. INTERFERON ALFA-2A [Suspect]
     Active Substance: INTERFERON ALFA-2A
     Indication: PRODUCT USED FOR UNKNOWN INDICATION
     Route: 065
     Dates: start: 1999
  8. HARVONI [Suspect]
     Active Substance: LEDIPASVIR\SOFOSBUVIR
     Indication: PRODUCT USED FOR UNKNOWN INDICATION
     Route: 065
     Dates: start: 201510
  9. VITAMIN B12 [Concomitant]
     Active Substance: CYANOCOBALAMIN
  10. MILK THISTLE [Concomitant]
     Active Substance: DIETARY SUPPLEMENT\HERBALS\MILK THISTLE
  11. PEGASYS [Suspect]
     Active Substance: PEGINTERFERON ALFA-2A
     Dosage: PEGASYS-RBV FOR UNKNOWN INDICATIONS
     Route: 065
     Dates: start: 2003
  12. RIBAVIRIN. [Suspect]
     Active Substance: RIBAVIRIN
     Dosage: PEGASYS-RBV FOR UNKNOWN INDICATIONS (STARTED 2003}
     Route: 048
     Dates: end: 2000
  13. DANDELION ROOT [Concomitant]
  14. PEGASYS [Suspect]
     Active Substance: PEGINTERFERON ALFA-2A
     Indication: HEPATITIS C
     Dosage: PEGASYS-RBV FOR UNKNOWN INDICATIONS (STARTED 2003}
     Route: 065
     Dates: start: 1999
  15. RIBAVIRIN. [Suspect]
     Active Substance: RIBAVIRIN
     Route: 048
  16. SYMBICORT [Concomitant]
     Active Substance: BUDESONIDE\FORMOTEROL FUMARATE DIHYDRATE
     Dosage: DOESN^T DO ANYTHING FOR COPD AND INTERSTITIAL LUNG DISEASE
     Route: 065

REACTIONS (20)
  - Therapy non-responder [Unknown]
  - Dislocation of vertebra [Unknown]
  - Respiration abnormal [Recovering/Resolving]
  - Weight increased [Unknown]
  - Thyroid disorder [Unknown]
  - Temperature regulation disorder [Not Recovered/Not Resolved]
  - Tooth loss [Unknown]
  - Hepatitis C [Unknown]
  - Spinal column stenosis [Unknown]
  - Insomnia [Unknown]
  - Lung disorder [Unknown]
  - Alopecia [Not Recovered/Not Resolved]
  - Anger [Unknown]
  - Synovial cyst [Unknown]
  - Plantar fasciitis [Unknown]
  - Fatigue [Unknown]
  - Viral load increased [Unknown]
  - Injury [Unknown]
  - Irritable bowel syndrome [Unknown]
  - Sciatica [Unknown]

NARRATIVE: CASE EVENT DATE: 1999
